FAERS Safety Report 9187959 (Version 7)
Quarter: 2014Q3

REPORT INFORMATION
  Report Type: Report from Study
  Country: AR (occurrence: AR)
  Receive Date: 20130325
  Receipt Date: 20140806
  Transmission Date: 20150326
  Serious: Yes (Life-Threatening, Hospitalization, Other)
  Sender: FDA-Public Use
  Company Number: AR-ROCHE-1193913

PATIENT
  Age: 36 Year
  Sex: Male

DRUGS (6)
  1. LORAZEPAM. [Suspect]
     Active Substance: LORAZEPAM
     Route: 065
     Dates: start: 20130125
  2. PEG-INTERFERON LAMBDA [Suspect]
     Active Substance: PEGINTERFERON LAMBDA-1A
     Indication: CHRONIC HEPATITIS C
     Dosage: LAST DOSE PRIOR TO SAE ONSET 09/JAN/2013
     Route: 058
     Dates: start: 20121211
  3. RIBAVIRIN. [Suspect]
     Active Substance: RIBAVIRIN
     Indication: CHRONIC HEPATITIS C
     Dosage: LAST DOSE PRIOR TO SAE ONSET 14/JAN/2013
     Route: 048
     Dates: start: 20121211
  4. DIAZEPAM. [Suspect]
     Active Substance: DIAZEPAM
     Indication: CHRONIC HEPATITIS C
     Route: 065
     Dates: start: 20130125
  5. LORAZEPAM. [Suspect]
     Active Substance: LORAZEPAM
     Indication: CHRONIC HEPATITIS C
     Route: 065
     Dates: start: 20130108
  6. PLACEBO [Suspect]
     Active Substance: UNSPECIFIED INGREDIENT
     Indication: CHRONIC HEPATITIS C
     Dosage: LAST DOSE PRIOR TO SAE ONSET 14/JAN/2013
     Route: 048
     Dates: start: 20121211

REACTIONS (2)
  - Jaundice [Unknown]
  - Suicide attempt [Recovered/Resolved]

NARRATIVE: CASE EVENT DATE: 20130114
